FAERS Safety Report 9536501 (Version 1)
Quarter: 2013Q2

REPORT INFORMATION
  Report Type: Spontaneous
  Country: US (occurrence: None)
  Receive Date: 20130510
  Receipt Date: 20130510
  Transmission Date: 20140414
  Serious: No
  Sender: FDA-Public Use
  Company Number: US-011373

PATIENT
  Age: 83 Year
  Sex: Male
  Weight: 94.35 kg

DRUGS (11)
  1. PICO-SALAX [Suspect]
     Indication: COLONOSCOPY
     Dates: start: 20130401, end: 20130401
  2. WARFARIN [Concomitant]
  3. CLARITIN /00917501/ [Concomitant]
  4. OMEPRAZOLE [Concomitant]
  5. CALCIUM [Concomitant]
  6. D VITAMIN NATURE MADE [Concomitant]
  7. PRAVASTATIN [Concomitant]
  8. OCUVITE /01053801/ [Concomitant]
  9. ESCITALOPRAM [Concomitant]
  10. AVODART [Concomitant]
  11. DULCOLAX /00362801/ [Concomitant]

REACTIONS (1)
  - Constipation [None]
